FAERS Safety Report 8483183-6 (Version None)
Quarter: 2012Q3

REPORT INFORMATION
  Report Type: 
  Country: None (occurrence: None)
  Receive Date: 20120702
  Receipt Date: 20120627
  Transmission Date: 20120928
  Serious: Yes (Other)
  Sender: FDA-Public Use
  Company Number: PHHY2012GR055496

PATIENT
  Age: 58 Year
  Sex: Female

DRUGS (2)
  1. EXTAVIA [Suspect]
     Dosage: UNK UKN, UNK
  2. GILENYA [Suspect]
     Dosage: UNK UKN, UNK
     Route: 048

REACTIONS (3)
  - ATRIOVENTRICULAR BLOCK SECOND DEGREE [None]
  - BRADYCARDIA [None]
  - INFLUENZA LIKE ILLNESS [None]
